FAERS Safety Report 8832850 (Version 1)
Quarter: 2012Q4

REPORT INFORMATION
  Report Type: 
  Country: US (occurrence: US)
  Receive Date: 20121009
  Receipt Date: 20121009
  Transmission Date: 20130627
  Serious: No
  Sender: FDA-Public Use
  Company Number: US-TEVA-363311USA

PATIENT
  Age: 52 Year
  Sex: Female

DRUGS (10)
  1. COPAXONE [Suspect]
     Indication: MULTIPLE SCLEROSIS
     Dosage: 20 Milligram Daily;
     Route: 058
  2. ACETAMINOPHEN [Concomitant]
     Route: 048
  3. CALCITONIN [Concomitant]
  4. CALCIUM W/VITAMIN D NOS [Concomitant]
     Route: 048
  5. CLONAZEPAM [Concomitant]
     Route: 048
  6. GUAIFENESIN [Concomitant]
     Route: 048
  7. LEVETIRACETAM [Concomitant]
     Route: 048
  8. SERTRALINE [Concomitant]
     Route: 048
  9. ALBUTEROL [Concomitant]
     Route: 055
  10. LOPERAMIDE [Concomitant]
     Route: 048

REACTIONS (1)
  - Injection site haemorrhage [Unknown]
